FAERS Safety Report 23448748 (Version 1)
Quarter: 2024Q1

REPORT INFORMATION
  Report Type: Spontaneous
  Country: None (occurrence: US)
  Receive Date: 20240127
  Receipt Date: 20240127
  Transmission Date: 20240410
  Serious: No
  Sender: FDA-Public Use
  Company Number: US-Amphastar Pharmaceuticals, Inc.-2152161

PATIENT
  Age: 72 Year
  Sex: Male
  Weight: 77.727 kg

DRUGS (10)
  1. GLUCAGON [Suspect]
     Active Substance: GLUCAGON\GLUCAGON HYDROCHLORIDE\WATER
     Indication: Blood glucose decreased
     Route: 065
  2. DEVICE [Suspect]
     Active Substance: DEVICE
  3. DEVICE [Suspect]
     Active Substance: DEVICE
  4. DEVICE [Suspect]
     Active Substance: DEVICE
  5. CORTISOL [Concomitant]
     Active Substance: HYDROCORTISONE
  6. NOVOLOG [Concomitant]
     Active Substance: INSULIN ASPART
  7. OMEPRAZOLE [Concomitant]
     Active Substance: OMEPRAZOLE
  8. LISINOPRIL [Concomitant]
     Active Substance: LISINOPRIL
  9. AMLODIPINE BESYLATE [Concomitant]
     Active Substance: AMLODIPINE BESYLATE
  10. INSULIN (UNSPECIFIED) [Concomitant]

REACTIONS (1)
  - Expired product administered [Recovered/Resolved]

NARRATIVE: CASE EVENT DATE: 20231216
